FAERS Safety Report 7089860-6 (Version None)
Quarter: 2010Q4

REPORT INFORMATION
  Report Type: 
  Country: None (occurrence: None)
  Receive Date: 20101108
  Receipt Date: 20101027
  Transmission Date: 20110411
  Serious: Yes (Death)
  Sender: FDA-Public Use
  Company Number: DE-AMGEN-DEUSP2010001718

PATIENT

DRUGS (3)
  1. NEUPOGEN [Suspect]
     Indication: NEUTROPENIA
     Dosage: 300 A?G, QD
     Route: 058
     Dates: start: 19920422, end: 19920619
  2. AMINOGLUTETHIMIDE [Concomitant]
     Dosage: UNK
     Dates: start: 19920421
  3. MITOXANTRONE [Concomitant]
     Dosage: UNK
     Dates: start: 19920421

REACTIONS (2)
  - BREAST CANCER [None]
  - RASH GENERALISED [None]
